FAERS Safety Report 6706175-3 (Version None)
Quarter: 2010Q2

REPORT INFORMATION
  Report Type: 
  Country: None (occurrence: None)
  Receive Date: 20100503
  Receipt Date: 20100421
  Transmission Date: 20101027
  Serious: Yes (Other)
  Sender: FDA-Public Use
  Company Number: GB-PFIZER INC-2010050127

PATIENT
  Age: 19 Year
  Sex: Female
  Weight: 71 kg

DRUGS (4)
  1. CHAMPIX [Suspect]
     Indication: SMOKING CESSATION THERAPY
     Dosage: 1 MG, UNK
     Route: 048
     Dates: start: 20100407, end: 20100407
  2. CHAMPIX [Suspect]
     Dosage: 0.5 MG, 1X/DAY
     Route: 048
     Dates: start: 20100331, end: 20100406
  3. IBUPROFEN [Concomitant]
     Indication: HEADACHE
     Dosage: 400 MG, UNK
     Route: 048
  4. PARACETAMOL [Concomitant]
     Indication: HEADACHE
     Dosage: 1 G, UNK
     Route: 048

REACTIONS (6)
  - CHEST PAIN [None]
  - DYSARTHRIA [None]
  - DYSPHEMIA [None]
  - ELECTROCARDIOGRAM T WAVE ABNORMAL [None]
  - EUPHORIC MOOD [None]
  - RESTLESSNESS [None]
